FAERS Safety Report 5570483-2 (Version None)
Quarter: 2007Q4

REPORT INFORMATION
  Report Type: 
  Country: None (occurrence: None)
  Receive Date: 20071221
  Receipt Date: 20071018
  Transmission Date: 20080405
  Serious: No
  Sender: FDA-Public Use
  Company Number: US-BRISTOL-MYERS SQUIBB COMPANY-13947536

PATIENT
  Age: 71 Year
  Sex: Female
  Weight: 82 kg

DRUGS (10)
  1. ORENCIA [Suspect]
     Indication: RHEUMATOID ARTHRITIS
     Route: 042
     Dates: start: 20070220
  2. SPIRONOLACTONE [Concomitant]
  3. NEXIUM [Concomitant]
  4. LIPITOR [Concomitant]
  5. PREDNISONE [Concomitant]
  6. PRO-AIR [Concomitant]
     Route: 055
  7. SPIRIVA [Concomitant]
  8. CALCIUM [Concomitant]
  9. SANCTURA [Concomitant]
  10. CITRUCEL [Concomitant]

REACTIONS (1)
  - COUGH [None]
